FAERS Safety Report 6093910-3 (Version None)
Quarter: 2009Q1

REPORT INFORMATION
  Report Type: 
  Country: None (occurrence: None)
  Receive Date: 20090226
  Receipt Date: 20090224
  Transmission Date: 20090719
  Serious: Yes (Hospitalization)
  Sender: FDA-Public Use
  Company Number: A0678864A

PATIENT
  Age: 47 Year
  Sex: Male

DRUGS (9)
  1. LOVAZA [Suspect]
     Dosage: 2MG TWICE PER DAY
     Route: 048
     Dates: start: 20081201
  2. LEXIVA [Suspect]
     Indication: HIV INFECTION
     Dosage: 700MG TWICE PER DAY
     Route: 048
     Dates: start: 20070904
  3. ZIAGEN [Suspect]
     Indication: HIV INFECTION
     Dosage: 300MG TWICE PER DAY
     Route: 048
     Dates: start: 20070904
  4. TRUVADA [Concomitant]
  5. NORVIR [Concomitant]
  6. DAPSONE [Concomitant]
  7. LORAZEPAM [Concomitant]
  8. VALTREX [Concomitant]
  9. ANTIRETROVIRAL MEDICATIONS [Concomitant]

REACTIONS (9)
  - ALANINE AMINOTRANSFERASE INCREASED [None]
  - ASPARTATE AMINOTRANSFERASE INCREASED [None]
  - BLOOD LACTATE DEHYDROGENASE INCREASED [None]
  - CHEST DISCOMFORT [None]
  - CHEST PAIN [None]
  - FATIGUE [None]
  - GAMMA-GLUTAMYLTRANSFERASE INCREASED [None]
  - LIVER FUNCTION TEST ABNORMAL [None]
  - RESPIRATORY TRACT CONGESTION [None]
